FAERS Safety Report 12077628 (Version 1)
Quarter: 2016Q1

REPORT INFORMATION
  Report Type: Spontaneous
  Country: US (occurrence: US)
  Receive Date: 20160215
  Receipt Date: 20160215
  Transmission Date: 20160526
  Serious: No
  Sender: FDA-Public Use
  Company Number: US-BIOGEN-2014BI027583

PATIENT
  Sex: Female

DRUGS (2)
  1. TYSABRI [Suspect]
     Active Substance: NATALIZUMAB
     Indication: MULTIPLE SCLEROSIS
     Route: 042
     Dates: start: 20091026, end: 20140825
  2. TYSABRI [Suspect]
     Active Substance: NATALIZUMAB
     Dates: start: 20151014

REACTIONS (3)
  - Inappropriate schedule of drug administration [Recovered/Resolved]
  - Central nervous system lesion [Not Recovered/Not Resolved]
  - Hemianaesthesia [Recovered/Resolved]
